FAERS Safety Report 8760847 (Version 2)
Quarter: 2012Q4

REPORT INFORMATION
  Report Type: 
  Country: BE (occurrence: BE)
  Receive Date: 20120830
  Receipt Date: 20120919
  Transmission Date: 20130627
  Serious: Yes (Other)
  Sender: FDA-Public Use
  Company Number: BE-009507513-1208BEL008125

PATIENT
  Age: 27 Year
  Sex: Female

DRUGS (1)
  1. NUVARING [Suspect]
     Dosage: 1 DF, UNK
     Route: 067

REACTIONS (2)
  - Abortion induced complete [Recovered/Resolved]
  - Unintended pregnancy [Recovered/Resolved]
